FAERS Safety Report 4958164-7 (Version None)
Quarter: 2006Q1

REPORT INFORMATION
  Report Type: 
  Country: None (occurrence: None)
  Receive Date: 20060330
  Receipt Date: 20060203
  Transmission Date: 20060701
  Serious: Yes (Other)
  Sender: FDA-Public Use
  Company Number: JP-ROCHE-436861

PATIENT
  Age: 63 Year
  Sex: Female

DRUGS (5)
  1. TAMIFLU [Suspect]
     Route: 048
     Dates: start: 20060131
  2. ASTOMIN [Concomitant]
     Route: 048
  3. MUCODYNE [Concomitant]
     Route: 048
  4. TRANSAMIN [Concomitant]
     Route: 048
  5. CALONAL [Concomitant]
     Dosage: WHEN NEEDED TAKE ONCE DAILY.
     Route: 048

REACTIONS (1)
  - TRIGEMINAL PALSY [None]
